FAERS Safety Report 14276333 (Version 1)
Quarter: 2017Q4

REPORT INFORMATION
  Report Type: Spontaneous
  Country: US (occurrence: US)
  Receive Date: 20171212
  Receipt Date: 20171212
  Transmission Date: 20180321
  Serious: Yes (Hospitalization, Other)
  Sender: FDA-Public Use
  Company Number: US-PFIZER INC-2017528246

PATIENT
  Age: 73 Year
  Sex: Male
  Weight: 90 kg

DRUGS (1)
  1. ATROPINE SULFATE/DIPHENOXYLATE HYDROCHLORIDE [Suspect]
     Active Substance: ATROPINE SULFATE\DIPHENOXYLATE HYDROCHLORIDE
     Indication: DIARRHOEA
     Dosage: 1 DF, AS NEEDED,
     Route: 048
     Dates: start: 20170118

REACTIONS (11)
  - Weight decreased [None]
  - Metastases to lymph nodes [None]
  - Neoplasm progression [Unknown]
  - Memory impairment [Not Recovered/Not Resolved]
  - Pain [Not Recovered/Not Resolved]
  - Metastases to liver [None]
  - Discomfort [Not Recovered/Not Resolved]
  - Drug ineffective [Unknown]
  - Decreased appetite [None]
  - Myocardial infarction [Recovered/Resolved with Sequelae]
  - Product use issue [Not Recovered/Not Resolved]

NARRATIVE: CASE EVENT DATE: 20170118
